FAERS Safety Report 24687350 (Version 1)
Quarter: 2024Q4

REPORT INFORMATION
  Report Type: Spontaneous
  Country: KR (occurrence: KR)
  Receive Date: 20241202
  Receipt Date: 20241202
  Transmission Date: 20250115
  Serious: Yes (Hospitalization, Other)
  Sender: BRISTOL-MYERS SQUIBB COMPANY
  Company Number: KR-BRISTOL-MYERS SQUIBB COMPANY-2024-185976

PATIENT
  Age: 79 Year
  Sex: Male
  Weight: 53 kg

DRUGS (22)
  1. ELIQUIS [Suspect]
     Active Substance: APIXABAN
     Indication: Hypertension
     Dates: start: 20191114
  2. LACTULOSE [Concomitant]
     Active Substance: LACTULOSE
     Indication: Prophylaxis
     Dosage: CONCENTRATION SOLUTION
     Dates: start: 20200617, end: 20201108
  3. FUROSEMIDE [Concomitant]
     Active Substance: FUROSEMIDE
     Indication: Ascites
     Dates: start: 20201120, end: 20210711
  4. FUROSEMIDE [Concomitant]
     Active Substance: FUROSEMIDE
     Dates: start: 20201102, end: 20201117
  5. SPIRONOLACTONE [Concomitant]
     Active Substance: SPIRONOLACTONE
     Indication: Ascites
     Dates: start: 20201120, end: 20210711
  6. SPIRONOLACTONE [Concomitant]
     Active Substance: SPIRONOLACTONE
     Indication: Proteinuria
     Dates: start: 20211008, end: 20211121
  7. SPIRONOLACTONE [Concomitant]
     Active Substance: SPIRONOLACTONE
     Dates: start: 20201102, end: 20201117
  8. MONTMORILLONITE [Concomitant]
     Active Substance: MONTMORILLONITE
     Indication: Diarrhoea
     Dates: start: 20201109, end: 20201117
  9. TRIMEBUTINE MALEATE [Concomitant]
     Active Substance: TRIMEBUTINE MALEATE
     Indication: Prophylaxis
     Dates: start: 20211105, end: 20211109
  10. TRIMEBUTINE MALEATE [Concomitant]
     Active Substance: TRIMEBUTINE MALEATE
     Indication: Diarrhoea
     Dates: start: 20201109, end: 20210502
  11. OMEPRAZOLE [Concomitant]
     Active Substance: OMEPRAZOLE
     Indication: Prophylaxis
     Dates: start: 20201111, end: 20201229
  12. PANTOPRAZOLE SODIUM [Concomitant]
     Active Substance: PANTOPRAZOLE SODIUM
     Indication: Duodenal ulcer
     Dates: start: 20201228, end: 20210106
  13. SODIUM ALGINATE [Concomitant]
     Active Substance: SODIUM ALGINATE
     Indication: Duodenal ulcer
     Dates: start: 20201229, end: 20210502
  14. ESOMEPRAZOLE MAGNESIUM [Concomitant]
     Active Substance: ESOMEPRAZOLE MAGNESIUM
     Indication: Prophylaxis
     Dates: start: 20210113, end: 20211104
  15. TIROPRAMIDE HYDROCHLORIDE [Concomitant]
     Active Substance: TIROPRAMIDE HYDROCHLORIDE
     Indication: Diarrhoea
     Dates: start: 20211105, end: 20211109
  16. RACECADOTRIL [Concomitant]
     Active Substance: RACECADOTRIL
     Indication: Diarrhoea
     Dates: start: 20211105, end: 20211109
  17. URSODIOL [Concomitant]
     Active Substance: URSODIOL
     Indication: Hepatic cirrhosis
     Dates: start: 20180704
  18. L-ISOLEUCINE [Concomitant]
     Indication: Hepatic cirrhosis
     Dates: start: 20190603
  19. L-LEUCINE [Concomitant]
     Indication: Hepatic cirrhosis
     Dates: start: 20190603
  20. L-VALINE [Concomitant]
     Indication: Hepatic cirrhosis
     Dates: start: 20190603
  21. TORSEMIDE [Concomitant]
     Active Substance: TORSEMIDE
     Indication: Hypertension
     Dates: start: 20181220, end: 20201111
  22. CARVEDILOL [Concomitant]
     Active Substance: CARVEDILOL
     Indication: Hypertension
     Dates: start: 20181220, end: 20211104

REACTIONS (2)
  - Clostridium difficile infection [Recovered/Resolved]
  - Off label use [Unknown]

NARRATIVE: CASE EVENT DATE: 20211122
